FAERS Safety Report 8347997-5 (Version None)
Quarter: 2012Q2

REPORT INFORMATION
  Report Type: 
  Country: None (occurrence: None)
  Receive Date: 20120507
  Receipt Date: 20120421
  Transmission Date: 20120825
  Serious: Yes (Hospitalization)
  Sender: FDA-Public Use
  Company Number: UTC-018057

PATIENT
  Age: 58 Year
  Sex: Female

DRUGS (1)
  1. REMODULIN [Suspect]
     Dosage: 54.72 UG/KG (0.38 UG/KG, 1 IN 1 MIN), SUBCUTANEOUS
     Route: 058

REACTIONS (1)
  - INFECTION [None]
